FAERS Safety Report 13285435 (Version 1)
Quarter: 2017Q1

REPORT INFORMATION
  Report Type: Report from Study
  Country: CO (occurrence: CO)
  Receive Date: 20170301
  Receipt Date: 20170301
  Transmission Date: 20170428
  Serious: Yes (Other)
  Sender: FDA-Public Use
  Company Number: PHHY2017CO031561

PATIENT
  Age: 35 Year
  Sex: Female
  Weight: 46 kg

DRUGS (1)
  1. GILENYA [Suspect]
     Active Substance: FINGOLIMOD HYDROCHLORIDE
     Indication: MULTIPLE SCLEROSIS
     Dosage: 0.5 MG, QD
     Route: 048
     Dates: start: 20160618

REACTIONS (4)
  - Pain [Unknown]
  - Multiple sclerosis [Unknown]
  - Dysarthria [Unknown]
  - Seizure [Unknown]

NARRATIVE: CASE EVENT DATE: 20170101
